FAERS Safety Report 25341013 (Version 1)
Quarter: 2025Q2

REPORT INFORMATION
  Report Type: Other
  Country: US (occurrence: US)
  Receive Date: 20250521
  Receipt Date: 20250521
  Transmission Date: 20250717
  Serious: Yes (Hospitalization)
  Sender: SERVIER
  Company Number: US-SERVIER-S25006455

PATIENT

DRUGS (1)
  1. CALASPARGASE PEGOL [Suspect]
     Active Substance: CALASPARGASE PEGOL
     Indication: B-cell type acute leukaemia
     Route: 042
     Dates: start: 2024

REACTIONS (6)
  - Febrile neutropenia [Unknown]
  - Infection [Unknown]
  - Pseudomonas infection [Recovered/Resolved]
  - Bacterial infection [Recovered/Resolved]
  - Pneumonia fungal [Recovered/Resolved]
  - Pulmonary mucormycosis [Recovered/Resolved]

NARRATIVE: CASE EVENT DATE: 20240101
